FAERS Safety Report 10721255 (Version 1)
Quarter: 2015Q1

REPORT INFORMATION
  Report Type: Spontaneous
  Country: US (occurrence: US)
  Receive Date: 20150119
  Receipt Date: 20150119
  Transmission Date: 20150721
  Serious: No
  Sender: FDA-Public Use
  Company Number: US-009507513-1501USA005025

PATIENT
  Age: 27 Year
  Sex: Female
  Weight: 62.13 kg

DRUGS (3)
  1. LEXAPRO [Concomitant]
     Active Substance: ESCITALOPRAM OXALATE
     Dosage: UNK
  2. PRENATAL VITAMINS (UNSPECIFIED) [Concomitant]
     Dosage: UNK
  3. NEXPLANON [Suspect]
     Active Substance: ETONOGESTREL
     Indication: CONTRACEPTION
     Dosage: 1 ROD (68 MG), FREQUENCY UNSPECIFIED
     Route: 059
     Dates: start: 20141217

REACTIONS (5)
  - Skin discolouration [Recovering/Resolving]
  - Skin fissures [Recovering/Resolving]
  - Skin exfoliation [Recovering/Resolving]
  - Implant site reaction [Recovering/Resolving]
  - Implant site pruritus [Recovering/Resolving]

NARRATIVE: CASE EVENT DATE: 201412
